FAERS Safety Report 19262578 (Version 3)
Quarter: 2021Q3

REPORT INFORMATION
  Report Type: Report from Study
  Country: US (occurrence: US)
  Receive Date: 20210517
  Receipt Date: 20210720
  Transmission Date: 20211014
  Serious: Yes (Other)
  Sender: FDA-Public Use
  Company Number: US-AMGEN-USASP2021073919

PATIENT
  Age: 55 Year
  Sex: Female

DRUGS (4)
  1. OTEZLA [Suspect]
     Active Substance: APREMILAST
     Indication: PRODUCT USED FOR UNKNOWN INDICATION
     Dosage: 30 MILLIGRAM, BID
     Route: 048
     Dates: start: 20210415, end: 2021
  2. OTEZLA [Suspect]
     Active Substance: APREMILAST
     Dosage: 30 MILLIGRAM, BID
     Route: 048
     Dates: start: 2021, end: 20210711
  3. PEPCID [Suspect]
     Active Substance: FAMOTIDINE
     Indication: GASTROENTERITIS VIRAL
     Dosage: UNK
     Route: 065
     Dates: start: 2021
  4. PEPCID [Suspect]
     Active Substance: FAMOTIDINE
     Indication: ABDOMINAL PAIN UPPER

REACTIONS (12)
  - Abdominal pain upper [Unknown]
  - Fluid intake reduced [Unknown]
  - Syncope [Unknown]
  - Haematochezia [Unknown]
  - Extra dose administered [Unknown]
  - Nasopharyngitis [Recovered/Resolved]
  - Diarrhoea [Not Recovered/Not Resolved]
  - Nausea [Not Recovered/Not Resolved]
  - Psoriasis [Not Recovered/Not Resolved]
  - Vomiting [Unknown]
  - Cough [Unknown]
  - Oral pain [Unknown]

NARRATIVE: CASE EVENT DATE: 2021
